FAERS Safety Report 8153398-5 (Version None)
Quarter: 2012Q1

REPORT INFORMATION
  Report Type: 
  Country: None (occurrence: None)
  Receive Date: 20120221
  Receipt Date: 20120217
  Transmission Date: 20120608
  Serious: Yes (Life-Threatening, Other)
  Sender: FDA-Public Use
  Company Number: BR-ROCHE-1029223

PATIENT
  Age: 74 Year
  Sex: Male
  Weight: 4 kg

DRUGS (12)
  1. RANITIDINE [Concomitant]
  2. SOTALOL HYDROCHLORIDE [Concomitant]
  3. TAMSULOSIN HYDROCHLORIDE [Concomitant]
  4. COUMADIN [Concomitant]
  5. LOSARTAN POTASSIUM [Concomitant]
  6. PLAVIX [Concomitant]
  7. CLONAZEPAM [Concomitant]
  8. CRESTOR [Concomitant]
  9. ROCEPHIN [Suspect]
     Indication: BRONCHOPNEUMONIA
     Route: 042
     Dates: start: 20120107, end: 20120107
  10. LASIX [Concomitant]
  11. CARVEDILOL [Concomitant]
  12. ZOMAX [Concomitant]

REACTIONS (2)
  - NAUSEA [None]
  - ACUTE RESPIRATORY FAILURE [None]
